FAERS Safety Report 4285885-4 (Version None)
Quarter: 2004Q1

REPORT INFORMATION
  Report Type: 
  Country: None (occurrence: None)
  Receive Date: 20040203
  Receipt Date: 20040122
  Transmission Date: 20041129
  Serious: Yes (Hospitalization)
  Sender: FDA-Public Use
  Company Number: US-JNJFOC-20030901268

PATIENT
  Age: 71 Year
  Sex: Male
  Weight: 97.977 kg

DRUGS (28)
  1. INFLIXIMAB, RECOMBINANT - BLINDED (INFLIXIMAB, RECOMBINANT) LYOPHILIZE [Suspect]
     Indication: PSORIATIC ARTHROPATHY
     Dosage: SEE IMAGE
     Route: 042
     Dates: start: 20030602
  2. INFLIXIMAB, RECOMBINANT - BLINDED (INFLIXIMAB, RECOMBINANT) LYOPHILIZE [Suspect]
     Indication: PSORIATIC ARTHROPATHY
     Dosage: SEE IMAGE
     Route: 042
     Dates: start: 20030616
  3. INFLIXIMAB, RECOMBINANT - BLINDED (INFLIXIMAB, RECOMBINANT) LYOPHILIZE [Suspect]
     Indication: PSORIATIC ARTHROPATHY
     Dosage: SEE IMAGE
     Route: 042
     Dates: start: 20030715
  4. INFLIXIMAB, RECOMBINANT - BLINDED (INFLIXIMAB, RECOMBINANT) LYOPHILIZE [Suspect]
     Indication: PSORIATIC ARTHROPATHY
     Dosage: SEE IMAGE
     Route: 042
     Dates: start: 20030929
  5. INFLIXIMAB, RECOMBINANT - BLINDED (INFLIXIMAB, RECOMBINANT) LYOPHILIZE [Suspect]
     Indication: PSORIATIC ARTHROPATHY
     Dosage: SEE IMAGE
     Route: 042
     Dates: start: 20031103
  6. INFLIXIMAB, RECOMBINANT - BLINDED (INFLIXIMAB, RECOMBINANT) LYOPHILIZE [Suspect]
     Indication: PSORIATIC ARTHROPATHY
     Dosage: SEE IMAGE
     Route: 042
     Dates: start: 20031117
  7. INFLIXIMAB, RECOMBINANT - BLINDED (INFLIXIMAB, RECOMBINANT) LYOPHILIZE [Suspect]
     Indication: PSORIATIC ARTHROPATHY
     Dosage: SEE IMAGE
     Route: 042
     Dates: start: 20031201
  8. INFLIXIMAB, RECOMBINANT - BLINDED (INFLIXIMAB, RECOMBINANT) LYOPHILIZE [Suspect]
     Indication: PSORIATIC ARTHROPATHY
     Dosage: SEE IMAGE
     Route: 042
     Dates: start: 20031229
  9. PLACEBO (PLACEBO) LYOPHILIZED POWDER [Suspect]
     Indication: PSORIATIC ARTHROPATHY
     Dosage: SEE IMAGE
     Route: 042
     Dates: start: 20030602
  10. PLACEBO (PLACEBO) LYOPHILIZED POWDER [Suspect]
     Indication: PSORIATIC ARTHROPATHY
     Dosage: SEE IMAGE
     Route: 042
     Dates: start: 20030616
  11. PLACEBO (PLACEBO) LYOPHILIZED POWDER [Suspect]
     Indication: PSORIATIC ARTHROPATHY
     Dosage: SEE IMAGE
     Route: 042
     Dates: start: 20030715
  12. PLACEBO (PLACEBO) LYOPHILIZED POWDER [Suspect]
     Indication: PSORIATIC ARTHROPATHY
     Dosage: SEE IMAGE
     Route: 042
     Dates: start: 20030929
  13. PLACEBO (PLACEBO) LYOPHILIZED POWDER [Suspect]
     Indication: PSORIATIC ARTHROPATHY
     Dosage: SEE IMAGE
     Route: 042
     Dates: start: 20031103
  14. PLACEBO (PLACEBO) LYOPHILIZED POWDER [Suspect]
     Indication: PSORIATIC ARTHROPATHY
     Dosage: SEE IMAGE
     Route: 042
     Dates: start: 20031117
  15. PLACEBO (PLACEBO) LYOPHILIZED POWDER [Suspect]
     Indication: PSORIATIC ARTHROPATHY
     Dosage: SEE IMAGE
     Route: 042
     Dates: start: 20031201
  16. PLACEBO (PLACEBO) LYOPHILIZED POWDER [Suspect]
     Indication: PSORIATIC ARTHROPATHY
     Dosage: SEE IMAGE
     Route: 042
     Dates: start: 20031229
  17. SALSALATE (SALSALATE) [Concomitant]
  18. METHOTREXATE [Concomitant]
  19. FOLIC ACID [Concomitant]
  20. NITRO-DUR [Concomitant]
  21. NITRO SPRAY (ISOSORBIDE DINITRATE) [Concomitant]
  22. ZOCOR [Concomitant]
  23. NITRODUR PATCH (GLYCERYL TRINITRATE) [Concomitant]
  24. ASPIRIN [Concomitant]
  25. COZAAR [Concomitant]
  26. ZANTAC [Concomitant]
  27. ATROVENT [Concomitant]
  28. VITAMIN C (ASCORBIC ACID) [Concomitant]

REACTIONS (13)
  - ANGINA PECTORIS [None]
  - AORTIC ANEURYSM [None]
  - BLOOD PRESSURE SYSTOLIC INCREASED [None]
  - BUNDLE BRANCH BLOCK [None]
  - CARDIAC MURMUR [None]
  - CREPITATIONS [None]
  - ELECTROCARDIOGRAM ABNORMAL [None]
  - LIVEDO RETICULARIS [None]
  - MACROCYTOSIS [None]
  - POST PROCEDURAL COMPLICATION [None]
  - PULSE ABSENT [None]
  - THROMBOCYTOPENIA [None]
  - VENTRICULAR EXTRASYSTOLES [None]
